FAERS Safety Report 4311144-7 (Version None)
Quarter: 2004Q1

REPORT INFORMATION
  Report Type: 
  Country: None (occurrence: None)
  Receive Date: 20040302
  Receipt Date: 20040217
  Transmission Date: 20041129
  Serious: Yes (Hospitalization)
  Sender: FDA-Public Use
  Company Number: SE-JNJFOC-20040201560

PATIENT
  Age: 58 Year
  Sex: Male

DRUGS (11)
  1. RISPERDAL [Suspect]
     Indication: PSYCHOTIC DISORDER
     Dates: end: 20021101
  2. HALDOL [Suspect]
     Indication: PSYCHOTIC DISORDER
  3. LITHIONIT (LITHIUM SULFATE) [Suspect]
     Indication: PSYCHOTIC DISORDER
  4. PULMICORT TURBUHALER (BUDESONIDE) POWDER [Concomitant]
  5. GLUCOPHAGE [Concomitant]
  6. TROMBYL (ACETYLSALICYLIC ACID) [Concomitant]
  7. TOREM (TORASEMIDE) [Concomitant]
  8. LAKTIPEX (LACTULOSE) [Concomitant]
  9. REMERON [Concomitant]
  10. UNKNOWN (ALL OTHER THERAPEUTIC PRODUCTS) [Concomitant]
  11. ZOPICLONE (ZOPICLONE) [Concomitant]

REACTIONS (2)
  - CEREBRAL ATROPHY [None]
  - PARKINSON'S DISEASE [None]
